FAERS Safety Report 16483741 (Version 9)
Quarter: 2020Q2

REPORT INFORMATION
  Report Type: Spontaneous
  Country: US (occurrence: US)
  Receive Date: 20190627
  Receipt Date: 20200601
  Transmission Date: 20200713
  Serious: No
  Sender: FDA-Public Use
  Company Number: US-PFIZER INC-2019125632

PATIENT
  Age: 78 Year
  Sex: Female
  Weight: 70 kg

DRUGS (6)
  1. IBRANCE [Suspect]
     Active Substance: PALBOCICLIB
     Dosage: UNK
  2. XGEVA [Concomitant]
     Active Substance: DENOSUMAB
     Dosage: UNK, MONTHLY (SHOT ONCE A MONTH)
     Dates: start: 20190621, end: 20190621
  3. XGEVA [Concomitant]
     Active Substance: DENOSUMAB
     Indication: PELVIC NEOPLASM
     Dosage: UNK, MONTHLY
     Dates: start: 201806
  4. LETROZOLE. [Concomitant]
     Active Substance: LETROZOLE
     Indication: PELVIC NEOPLASM
     Dosage: 2.5 MG, 1X/DAY
     Dates: start: 201805
  5. IBRANCE [Suspect]
     Active Substance: PALBOCICLIB
     Dosage: 125 MG, ONCE DAILY
     Route: 048
     Dates: start: 201809
  6. IBRANCE [Suspect]
     Active Substance: PALBOCICLIB
     Indication: BREAST CANCER METASTATIC
     Dosage: 125 MG, CYCLIC (3 WEEKS ON, 1 WEEK OFF)
     Route: 048
     Dates: start: 201806, end: 2018

REACTIONS (3)
  - Fatigue [Not Recovered/Not Resolved]
  - Condition aggravated [Not Recovered/Not Resolved]
  - Alopecia [Not Recovered/Not Resolved]

NARRATIVE: CASE EVENT DATE: 201901
